FAERS Safety Report 26006599 (Version 1)
Quarter: 2025Q4

REPORT INFORMATION
  Report Type: Spontaneous
  Country: CA (occurrence: CA)
  Receive Date: 20251106
  Receipt Date: 20251106
  Transmission Date: 20260117
  Serious: Yes (Life-Threatening, Hospitalization)
  Sender: PHARMACOSMOS A/S
  Company Number: CA-NEBO-711983

PATIENT
  Age: 50 Year
  Sex: Female

DRUGS (1)
  1. MONOFERRIC [Suspect]
     Active Substance: FERRIC DERISOMALTOSE
     Indication: Anaemia
     Dates: start: 20250912, end: 20250912

REACTIONS (4)
  - Cerebrovascular accident [Not Recovered/Not Resolved]
  - Polycythaemia [Not Recovered/Not Resolved]
  - Coma [Not Recovered/Not Resolved]
  - Neoplasm malignant [Not Recovered/Not Resolved]
